FAERS Safety Report 7712446-4 (Version None)
Quarter: 2011Q3

REPORT INFORMATION
  Report Type: 
  Country: None (occurrence: None)
  Receive Date: 20110826
  Receipt Date: 20110814
  Transmission Date: 20111222
  Serious: Yes (Hospitalization)
  Sender: FDA-Public Use
  Company Number: DE-UCBSA-039197

PATIENT
  Sex: Female

DRUGS (3)
  1. TOPAMAX [Suspect]
     Dosage: TOTAL AMOUNT 225 MG
     Route: 048
     Dates: start: 20110814
  2. TEGRETOL-XR [Suspect]
     Dosage: TOTAL AMOUNT 900 MG
     Route: 048
     Dates: start: 20110814
  3. KEPPRA [Suspect]
     Dosage: TOTAL AMOUNT 3000 MG
     Route: 048
     Dates: start: 20110814

REACTIONS (2)
  - INCORRECT DOSE ADMINISTERED [None]
  - ACCIDENTAL EXPOSURE [None]
